FAERS Safety Report 6845564-3 (Version None)
Quarter: 2010Q3

REPORT INFORMATION
  Report Type: 
  Country: None (occurrence: None)
  Receive Date: 20100715
  Receipt Date: 20071015
  Transmission Date: 20110219
  Serious: No
  Sender: FDA-Public Use
  Company Number: US-PFIZER INC-2007070635

PATIENT
  Age: 45 Year
  Sex: Male
  Weight: 83.6 kg

DRUGS (3)
  1. CHANTIX [Suspect]
     Indication: SMOKING CESSATION THERAPY
     Dates: start: 20070801
  2. ALPRAZOLAM [Concomitant]
     Indication: ANXIETY
  3. LOTREL [Concomitant]
     Indication: HYPERTENSION

REACTIONS (2)
  - RESTLESS LEGS SYNDROME [None]
  - VISION BLURRED [None]
